FAERS Safety Report 21665481 (Version 4)
Quarter: 2023Q2

REPORT INFORMATION
  Report Type: Report from Study
  Country: US (occurrence: US)
  Receive Date: 20221201
  Receipt Date: 20230417
  Transmission Date: 20230721
  Serious: Yes (Other)
  Sender: FDA-Public Use
  Company Number: US-ABBVIE-4218760

PATIENT
  Age: 83 Year
  Sex: Female
  Weight: 65 kg

DRUGS (1)
  1. RINVOQ [Suspect]
     Active Substance: UPADACITINIB
     Indication: Rheumatoid arthritis
     Route: 048

REACTIONS (21)
  - Blindness unilateral [Unknown]
  - Pain in extremity [Not Recovered/Not Resolved]
  - Visual impairment [Unknown]
  - Fall [Unknown]
  - Cervical vertebral fracture [Unknown]
  - Gait disturbance [Unknown]
  - Dyspnoea [Unknown]
  - Unevaluable event [Unknown]
  - Arthritis [Unknown]
  - Eye haemorrhage [Unknown]
  - Hip fracture [Unknown]
  - Hernia [Unknown]
  - Loss of personal independence in daily activities [Unknown]
  - Muscle spasms [Unknown]
  - Joint effusion [Unknown]
  - Peripheral venous disease [Unknown]
  - Dysstasia [Unknown]
  - Back pain [Not Recovered/Not Resolved]
  - Macular degeneration [Not Recovered/Not Resolved]
  - Hand deformity [Unknown]
  - Spinal column injury [Unknown]

NARRATIVE: CASE EVENT DATE: 20220202
